FAERS Safety Report 9807623 (Version 1)
Quarter: 2014Q1

REPORT INFORMATION
  Report Type: Spontaneous
  Country: US (occurrence: US)
  Receive Date: 20140110
  Receipt Date: 20140110
  Transmission Date: 20141002
  Serious: No
  Sender: FDA-Public Use
  Company Number: US-SANOFI-AVENTIS-2013SA071078

PATIENT
  Sex: Female

DRUGS (1)
  1. PLAVIX [Suspect]
     Route: 065
     Dates: start: 201302

REACTIONS (7)
  - Back disorder [Unknown]
  - Feeling abnormal [Unknown]
  - Sneezing [Unknown]
  - Dyspnoea [Unknown]
  - Migraine [Unknown]
  - Contusion [Unknown]
  - Blood pressure increased [Not Recovered/Not Resolved]
